FAERS Safety Report 6863002-1 (Version None)
Quarter: 2010Q2

REPORT INFORMATION
  Report Type: 
  Country: None (occurrence: None)
  Receive Date: 20100528
  Receipt Date: 20100330
  Transmission Date: 20101027
  Serious: No
  Sender: FDA-Public Use
  Company Number: 009525

PATIENT
  Age: 66 Year
  Sex: Female

DRUGS (3)
  1. LACOSAMIDE [Suspect]
     Indication: CONVULSION
     Dosage: 100 MG BID ORAL
     Route: 048
  2. ZONEGRAN [Concomitant]
  3. DEPAKOTE [Concomitant]

REACTIONS (2)
  - GRAND MAL CONVULSION [None]
  - MANIA [None]
